FAERS Safety Report 10065049 (Version 1)
Quarter: 2014Q2

REPORT INFORMATION
  Report Type: Report from Study
  Country: US (occurrence: US)
  Receive Date: 20140408
  Receipt Date: 20140408
  Transmission Date: 20141212
  Serious: Yes (Hospitalization)
  Sender: FDA-Public Use
  Company Number: US-ABBVIE-14P-163-1219498-00

PATIENT
  Age: 29 Year
  Sex: Male

DRUGS (10)
  1. HUMIRA [Suspect]
     Indication: CROHN^S DISEASE
     Dates: start: 20140226
  2. PREDNISONE [Concomitant]
     Indication: CROHN^S DISEASE
  3. FOLIC ACID [Concomitant]
     Indication: CROHN^S DISEASE
  4. RANITIDINE [Concomitant]
     Indication: GASTROOESOPHAGEAL REFLUX DISEASE
     Dosage: 1 IN AM AND 1 IN PM
  5. AZATHIOPRINE [Concomitant]
     Indication: CROHN^S DISEASE
  6. MIRTAZAPINE [Concomitant]
     Indication: DEPRESSION
  7. SIMETHICONE [Concomitant]
     Indication: FLATULENCE
  8. VITAMIN B 12 [Concomitant]
     Indication: VITAMIN SUPPLEMENTATION
  9. GUMMI MULTIVITAMIN [Concomitant]
     Indication: VITAMIN SUPPLEMENTATION
  10. VIACTIVE CALCIUM CHEWS [Concomitant]
     Indication: MINERAL SUPPLEMENTATION

REACTIONS (6)
  - Intestinal obstruction [Recovering/Resolving]
  - Abdominal distension [Unknown]
  - Pain [Unknown]
  - Nausea [Unknown]
  - Nephrolithiasis [Unknown]
  - Pruritus [Unknown]
